FAERS Safety Report 9712135 (Version 1)
Quarter: 2013Q4

REPORT INFORMATION
  Report Type: Spontaneous
  Country: US (occurrence: US)
  Receive Date: 20131126
  Receipt Date: 20131126
  Transmission Date: 20140711
  Serious: Yes (Congenital Anomaly)
  Sender: FDA-Public Use
  Company Number: US-B.I. PHARMACEUTICALS,INC./RIDGEFIELD-2013-RO-01838RO

PATIENT
  Sex: 0
  Weight: 2 kg

DRUGS (8)
  1. MYCOPHENOLATE MOFETIL [Suspect]
     Indication: EXPOSURE VIA FATHER
  2. PREDNISONE [Suspect]
     Indication: EXPOSURE VIA FATHER
  3. TACROLIMUS [Suspect]
     Indication: EXPOSURE VIA FATHER
  4. DILTIAZEM [Suspect]
     Indication: EXPOSURE VIA FATHER
  5. HYDROCHLOROTHIAZIDE [Suspect]
     Indication: EXPOSURE VIA FATHER
  6. ALLOPURINOL [Suspect]
     Indication: EXPOSURE VIA FATHER
  7. RANITIDINE [Suspect]
     Indication: EXPOSURE VIA FATHER
  8. POTASSIUM CHLORIDE [Suspect]
     Indication: EXPOSURE VIA FATHER

REACTIONS (2)
  - Prader-Willi syndrome [Unknown]
  - Ankyloglossia congenital [Unknown]
